FAERS Safety Report 5227291-1 (Version None)
Quarter: 2007Q1

REPORT INFORMATION
  Report Type: 
  Country: None (occurrence: None)
  Receive Date: 20070130
  Receipt Date: 20070127
  Transmission Date: 20070707
  Serious: No
  Sender: FDA-Public Use
  Company Number: 232538

PATIENT
  Age: 10 Year
  Sex: Female
  Weight: 38.8 kg

DRUGS (1)
  1. NUTROPIN [Suspect]
     Indication: DRUG USE FOR UNKNOWN INDICATION

REACTIONS (1)
  - HUMERUS FRACTURE [None]
